FAERS Safety Report 21411063 (Version 1)
Quarter: 2022Q4

REPORT INFORMATION
  Report Type: Spontaneous
  Country: US (occurrence: None)
  Receive Date: 20221004
  Receipt Date: 20221004
  Transmission Date: 20230113
  Serious: Yes (Other)
  Sender: FDA-Public Use
  Company Number: None

PATIENT
  Age: 28 Year
  Sex: Female

DRUGS (2)
  1. PARAGARD T 380A [Suspect]
     Active Substance: COPPER
  2. UNSPECIFIED INGREDIENT [Suspect]
     Active Substance: UNSPECIFIED INGREDIENT

REACTIONS (19)
  - Heavy menstrual bleeding [None]
  - Fungal infection [None]
  - White blood cells urine positive [None]
  - Urinary tract infection [None]
  - Ovarian cyst [None]
  - Septic shock [None]
  - Dizziness [None]
  - Fatigue [None]
  - Dyspareunia [None]
  - Tachycardia [None]
  - Suicidal ideation [None]
  - Premenstrual dysphoric disorder [None]
  - Migraine [None]
  - Depressed level of consciousness [None]
  - Dissociation [None]
  - Anxiety [None]
  - Depression [None]
  - Heart rate decreased [None]
  - Device expulsion [None]

NARRATIVE: CASE EVENT DATE: 20220919
